FAERS Safety Report 4423948-0 (Version None)
Quarter: 2004Q3

REPORT INFORMATION
  Report Type: 
  Country: None (occurrence: None)
  Receive Date: 20040805
  Receipt Date: 20040723
  Transmission Date: 20050211
  Serious: Yes (Hospitalization)
  Sender: FDA-Public Use
  Company Number: 2004031020

PATIENT
  Age: 57 Year
  Sex: Female

DRUGS (6)
  1. ATARAX [Suspect]
     Indication: ILL-DEFINED DISORDER
     Dosage: 25 MG ORAL
     Route: 048
  2. PREDNISOLONE SODIUM SULFOBENZOATE (PREDNISOLONE SODIUM SULFOBENZOATE) [Suspect]
     Indication: ILL-DEFINED DISORDER
     Dosage: 10 MG ORAL
     Route: 048
     Dates: start: 20031231, end: 20040109
  3. ZOPICLONE (ZOPICLONE) [Suspect]
     Indication: ILL-DEFINED DISORDER
     Dosage: 7.5 MG ORAL
     Route: 048
  4. DUOVENT (FENOTEROL HYDROBROMIDE, IPRATROPIUM BROMIDE) [Suspect]
     Indication: ILL-DEFINED DISORDER
     Dosage: INHALATION
     Route: 055
  5. COMBIVENT [Suspect]
     Indication: ILL-DEFINED DISORDER
     Dosage: INHALATION
     Route: 055
  6. TELITHROMYCIN (TELITHROMYCIN) [Suspect]
     Indication: ILL-DEFINED DISORDER
     Dosage: 800 MG ORAL
     Route: 048

REACTIONS (21)
  - ASTHENIA [None]
  - BRONCHOPNEUMOPATHY [None]
  - CARDIAC MURMUR [None]
  - CERVICAL STRICTURE [None]
  - CHRONIC OBSTRUCTIVE AIRWAYS DISEASE [None]
  - CREPITATIONS [None]
  - DYSPNOEA [None]
  - DYSSTASIA [None]
  - EMPHYSEMA [None]
  - EPISTAXIS [None]
  - HYPOREFLEXIA [None]
  - INFECTION [None]
  - MOBILITY DECREASED [None]
  - MUSCULAR WEAKNESS [None]
  - MYALGIA [None]
  - MYOPATHY [None]
  - PARESIS [None]
  - PYREXIA [None]
  - RALES [None]
  - TENDON DISORDER [None]
  - THROMBOCYTOPENIA [None]
